FAERS Safety Report 22176092 (Version 9)
Quarter: 2023Q4

REPORT INFORMATION
  Report Type: Report from Study
  Country: US (occurrence: US)
  Receive Date: 20230405
  Receipt Date: 20231212
  Transmission Date: 20240109
  Serious: Yes (Other)
  Sender: FDA-Public Use
  Company Number: US-002147023-NVSC2023US076907

PATIENT
  Age: 32 Year
  Sex: Male

DRUGS (5)
  1. KESIMPTA [Suspect]
     Active Substance: OFATUMUMAB
     Indication: Multiple sclerosis
     Dosage: INJECT 1 PEN (20MG) MONTHLY STARTING AT WEEK 4 AS DIRECTED
     Route: 058
     Dates: start: 20230320
  2. KESIMPTA [Suspect]
     Active Substance: OFATUMUMAB
     Indication: Relapsing multiple sclerosis
     Dosage: UNK (EVERY 6 WEEKS)
     Route: 065
  3. KESIMPTA [Suspect]
     Active Substance: OFATUMUMAB
     Dosage: UNK (EVERY 4 WEEKS)
     Route: 065
  4. VITAMIN D [Concomitant]
     Active Substance: VITAMIN D NOS
     Indication: Product used for unknown indication
     Dosage: UNK
     Route: 065
  5. PROBIOTICS NOS [Concomitant]
     Active Substance: PROBIOTICS NOS
     Indication: Product used for unknown indication
     Dosage: UNK
     Route: 065

REACTIONS (9)
  - Multiple sclerosis [Unknown]
  - Poor quality sleep [Unknown]
  - Vomiting [Recovered/Resolved]
  - Gastroenteritis viral [Unknown]
  - Nausea [Recovered/Resolved]
  - Headache [Unknown]
  - Fatigue [Not Recovered/Not Resolved]
  - Immunoglobulins decreased [Unknown]
  - Inappropriate schedule of product administration [Unknown]

NARRATIVE: CASE EVENT DATE: 20230403
